FAERS Safety Report 14490801 (Version 1)
Quarter: 2018Q1

REPORT INFORMATION
  Report Type: Spontaneous
  Country: US (occurrence: US)
  Receive Date: 20180206
  Receipt Date: 20180206
  Transmission Date: 20180509
  Serious: No
  Sender: FDA-Public Use
  Company Number: US-SCIEGEN PHARMACEUTICALS INC-2018SCISPO00035

PATIENT

DRUGS (3)
  1. PRAMIPEXOLE DIHYDROCHLORIDE TABLETS [Suspect]
     Active Substance: PRAMIPEXOLE DIHYDROCHLORIDE
     Indication: RESTLESS LEGS SYNDROME
     Dosage: THREE 50 MG TABLETS, QD AT NIGHT
     Route: 048
  2. GABAPENTIN TABLETS,USP [Suspect]
     Active Substance: GABAPENTIN
     Indication: PRODUCT USED FOR UNKNOWN INDICATION
     Route: 065
  3. LYRICA [Suspect]
     Active Substance: PREGABALIN
     Indication: PRODUCT USED FOR UNKNOWN INDICATION
     Dosage: 50 MG, QD AT NIGHT TIME
     Route: 048
     Dates: start: 201711

REACTIONS (3)
  - Agitation [Unknown]
  - Drug effect incomplete [Unknown]
  - Insomnia [Unknown]
